FAERS Safety Report 5088977-5 (Version None)
Quarter: 2006Q3

REPORT INFORMATION
  Report Type: 
  Country: None (occurrence: None)
  Receive Date: 20060822
  Receipt Date: 20060814
  Transmission Date: 20061208
  Serious: Yes (Hospitalization)
  Sender: FDA-Public Use
  Company Number: 234505K06USA

PATIENT
  Age: 47 Year
  Sex: Female
  Weight: 64.4108 kg

DRUGS (2)
  1. REBIF [Suspect]
     Indication: MULTIPLE SCLEROSIS
     Dosage: 44 MCG, 3 IN 1 WEEKS, SUBCUTANEOUS
     Route: 058
     Dates: start: 20040316
  2. BIRTH CONTROL PILLS                             (ORAL CONTRACEPTIVE NO [Concomitant]

REACTIONS (13)
  - ACCIDENTAL EXPOSURE [None]
  - DEEP VEIN THROMBOSIS [None]
  - DIPLOPIA [None]
  - DRUG INEFFECTIVE [None]
  - FATIGUE [None]
  - INCORRECT DOSE ADMINISTERED [None]
  - INFLUENZA LIKE ILLNESS [None]
  - INJECTION SITE BRUISING [None]
  - INJECTION SITE PAIN [None]
  - INJECTION SITE REACTION [None]
  - MULTIPLE SCLEROSIS [None]
  - PANIC ATTACK [None]
  - VENOUS THROMBOSIS [None]
